FAERS Safety Report 8223722-3 (Version None)
Quarter: 2012Q1

REPORT INFORMATION
  Report Type: 
  Country: None (occurrence: None)
  Receive Date: 20120320
  Receipt Date: 20120320
  Transmission Date: 20120608
  Serious: Yes (Life-Threatening, Hospitalization)
  Sender: FDA-Public Use
  Company Number: None

PATIENT
  Age: 65 Year
  Sex: Male

DRUGS (1)
  1. CIPROFLOXACIN [Suspect]
     Indication: PNEUMONIA
     Dosage: 400 MG ONCE IV
     Route: 042
     Dates: start: 20110810, end: 20110810

REACTIONS (9)
  - THROAT TIGHTNESS [None]
  - OEDEMA MOUTH [None]
  - URTICARIA [None]
  - AGGRESSION [None]
  - RESPIRATORY DISTRESS [None]
  - PRURITUS [None]
  - LIP SWELLING [None]
  - TREMOR [None]
  - RESPIRATORY DEPRESSION [None]
